FAERS Safety Report 7811750-9 (Version None)
Quarter: 2011Q4

REPORT INFORMATION
  Report Type: 
  Country: None (occurrence: None)
  Receive Date: 20111013
  Receipt Date: 20110929
  Transmission Date: 20120403
  Serious: Yes (Death, Other)
  Sender: FDA-Public Use
  Company Number: US-ELI_LILLY_AND_COMPANY-US201106006100

PATIENT
  Sex: Female
  Weight: 60 kg

DRUGS (4)
  1. FORTEO [Suspect]
     Dosage: 20 UG, QD
     Route: 065
  2. FORTEO [Suspect]
     Dosage: 20 UG, QD
     Route: 065
  3. AVASTIN [Concomitant]
     Dosage: UNK, MONTHLY (1/M)
  4. FORTEO [Suspect]
     Indication: OSTEOPOROSIS
     Dosage: 20 UG, QD
     Route: 065
     Dates: start: 20110602

REACTIONS (6)
  - FEELING ABNORMAL [None]
  - DEATH [None]
  - ABDOMINAL PAIN UPPER [None]
  - PAIN [None]
  - MACULAR DEGENERATION [None]
  - BALANCE DISORDER [None]
